FAERS Safety Report 6926335-6 (Version None)
Quarter: 2010Q3

REPORT INFORMATION
  Report Type: 
  Country: None (occurrence: None)
  Receive Date: 20100816
  Receipt Date: 20100608
  Transmission Date: 20110219
  Serious: No
  Sender: FDA-Public Use
  Company Number: US-BAYER-201025687NA

PATIENT
  Sex: Female

DRUGS (1)
  1. YAZ [Suspect]
     Indication: PRODUCT USED FOR UNKNOWN INDICATION
     Dosage: FORGOT TO TAKE 5 PILLS LAST MONTH
     Route: 048

REACTIONS (2)
  - MENSTRUATION DELAYED [None]
  - PREGNANCY ON ORAL CONTRACEPTIVE [None]
